FAERS Safety Report 20880419 (Version 1)
Quarter: 2022Q2

REPORT INFORMATION
  Report Type: Spontaneous
  Country: US (occurrence: US)
  Receive Date: 20220526
  Receipt Date: 20220526
  Transmission Date: 20220721
  Serious: Yes (Hospitalization)
  Sender: FDA-Public Use
  Company Number: US-NOVEN PHARMACEUTICALS, INC.-2022-NOV-US000496

PATIENT
  Age: 26 Year
  Sex: Male
  Weight: 83.9 kg

DRUGS (3)
  1. DEXTROAMPHETAMINE [Suspect]
     Active Substance: DEXTROAMPHETAMINE
     Indication: Substance use
     Dosage: 20 MG, UNKNOWN
     Route: 065
  2. AMPHETAMINE [Suspect]
     Active Substance: AMPHETAMINE
     Indication: Substance use
     Dosage: 20 MG, UNKNOWN
     Route: 048
  3. METHADONE [Suspect]
     Active Substance: METHADONE HYDROCHLORIDE
     Indication: Accidental exposure to product
     Dosage: 20-25 ML (200-250 MG), SINGLE INGESTION
     Route: 048

REACTIONS (12)
  - Drug interaction [Recovered/Resolved]
  - Unresponsive to stimuli [Recovered/Resolved]
  - Cyanosis [Recovered/Resolved]
  - Apnoea [Recovered/Resolved]
  - Overdose [Recovered/Resolved]
  - Feeling of relaxation [Unknown]
  - Nausea [Recovered/Resolved]
  - Vomiting [Recovered/Resolved]
  - Insomnia [Unknown]
  - Malaise [Unknown]
  - Dizziness [Unknown]
  - Vision blurred [Unknown]
